FAERS Safety Report 9479258 (Version 1)
Quarter: 2013Q3

REPORT INFORMATION
  Report Type: Spontaneous
  Country: CA (occurrence: CA)
  Receive Date: 20130827
  Receipt Date: 20130827
  Transmission Date: 20140515
  Serious: Yes (Other)
  Sender: FDA-Public Use
  Company Number: CA-009507513-1308CAN012327

PATIENT
  Age: 53 Year
  Sex: Male

DRUGS (3)
  1. VICTRELIS [Suspect]
     Indication: CHRONIC HEPATITIS C
     Dosage: 800 MG, BID
     Route: 048
     Dates: start: 20130204, end: 20130819
  2. PEGINTERFERON ALFA-2A [Suspect]
     Indication: CHRONIC HEPATITIS C
     Dosage: 180 MICROGRAM, QW
     Route: 058
     Dates: start: 20130204, end: 20130819
  3. COPEGUS [Suspect]
     Indication: CHRONIC HEPATITIS C
     Dosage: 35 MG, QW
     Route: 048
     Dates: start: 20130204, end: 20130819

REACTIONS (1)
  - Viral test positive [Not Recovered/Not Resolved]
